FAERS Safety Report 8211046-X (Version None)
Quarter: 2012Q1

REPORT INFORMATION
  Report Type: 
  Country: None (occurrence: None)
  Receive Date: 20120315
  Receipt Date: 20120310
  Transmission Date: 20120608
  Serious: Yes (Hospitalization, Other)
  Sender: FDA-Public Use
  Company Number: PHHY2012PA022000

PATIENT
  Age: 78 Year
  Sex: Female

DRUGS (6)
  1. ARAVA [Concomitant]
     Dosage: 20 MG, PER DAY
     Route: 048
  2. PREDNISONE [Concomitant]
     Dosage: 5 MG, PER DAY
     Route: 048
  3. INDAPAMIDE [Concomitant]
     Dosage: 1 DF, PER DAY
     Route: 048
  4. ZOLEDRONOC ACID [Suspect]
     Indication: OSTEOPOROSIS
     Route: 042
  5. BISOPROLOL FUMARATE [Concomitant]
  6. AMLODIPINE [Concomitant]
     Dosage: 5 MG, PER DAY
     Route: 048

REACTIONS (2)
  - DECREASED APPETITE [None]
  - PARKINSON'S DISEASE [None]
